FAERS Safety Report 13820181 (Version 1)
Quarter: 2017Q3

REPORT INFORMATION
  Report Type: Spontaneous
  Country: US (occurrence: US)
  Receive Date: 20170801
  Receipt Date: 20170801
  Transmission Date: 20171127
  Serious: No
  Sender: FDA-Public Use
  Company Number: None

PATIENT
  Sex: Female

DRUGS (2)
  1. CAPECITABINE 150MG ACCORD [Suspect]
     Active Substance: CAPECITABINE
     Dosage: 1800 MG BID 7 DAYS ON, 7 DAYS OFF PO
     Dates: start: 201703
  2. CAPECITABINE 500MG ACCORD [Suspect]
     Active Substance: CAPECITABINE
     Dosage: 1800 MG BID X 7 DAYS ON, 7 DAYS OFF PO
     Route: 048
     Dates: start: 201703

REACTIONS (2)
  - Flushing [None]
  - Somnolence [None]
